FAERS Safety Report 9979031 (Version 1)
Quarter: 2014Q1

REPORT INFORMATION
  Report Type: Report from Study
  Country: US (occurrence: US)
  Receive Date: 20140306
  Receipt Date: 20140306
  Transmission Date: 20141002
  Serious: No
  Sender: FDA-Public Use
  Company Number: US-ABBVIE-13P-163-1169041-00

PATIENT
  Age: 57 Year
  Sex: Male

DRUGS (11)
  1. HUMIRA [Suspect]
     Indication: CROHN^S DISEASE
     Dates: start: 20130830
  2. ASACOL [Concomitant]
     Indication: CROHN^S DISEASE
     Dosage: 2 PILLS
  3. METFORMIN [Concomitant]
     Indication: BLOOD GLUCOSE INCREASED
     Dosage: 500 MG DAILY
  4. IMURAN [Concomitant]
     Indication: CROHN^S DISEASE
  5. TOPROL [Concomitant]
     Indication: HEART RATE INCREASED
  6. NEXIUM [Concomitant]
     Indication: GASTROOESOPHAGEAL REFLUX DISEASE
     Dosage: 40 MG DAILY
  7. MELOXICAM [Concomitant]
     Indication: OSTEOARTHRITIS
     Dosage: 15 MG DAILY
  8. LISINOPRIL [Concomitant]
     Indication: HYPERTENSION
     Dosage: 10 MG DAILY
  9. CLARITIN [Concomitant]
     Indication: MULTIPLE ALLERGIES
     Dosage: 10 MG DAILY
  10. FINASTERIDE [Concomitant]
     Indication: PROSTATIC DISORDER
     Dosage: 5 MG DAILY
  11. TAMULOSIN [Concomitant]
     Indication: PROSTATIC DISORDER
     Dosage: .4 MG DAILY

REACTIONS (1)
  - Fatigue [Recovered/Resolved]
